FAERS Safety Report 18973306 (Version 1)
Quarter: 2021Q1

REPORT INFORMATION
  Report Type: Spontaneous
  Country: US (occurrence: US)
  Receive Date: 20210305
  Receipt Date: 20210305
  Transmission Date: 20210420
  Serious: Yes (Other)
  Sender: FDA-Public Use
  Company Number: None

PATIENT
  Age: 46 Year
  Sex: Female
  Weight: 90 kg

DRUGS (2)
  1. GAMMAPLEX [Suspect]
     Active Substance: HUMAN IMMUNOGLOBULIN G
     Indication: MYASTHENIA GRAVIS
     Dosage: ?          OTHER FREQUENCY:DAILY X 4 DAYS;?
     Route: 042
     Dates: start: 20210121, end: 20210124
  2. GAMMAPLEX [Suspect]
     Active Substance: HUMAN IMMUNOGLOBULIN G
     Indication: MYASTHENIA GRAVIS
     Dosage: ?          OTHER FREQUENCY:DAILY X 4 DAYS;?
     Route: 042
     Dates: start: 20210121, end: 20210124

REACTIONS (6)
  - Nausea [None]
  - Headache [None]
  - Musculoskeletal stiffness [None]
  - Chills [None]
  - Abdominal discomfort [None]
  - Meningitis aseptic [None]

NARRATIVE: CASE EVENT DATE: 20210124
